FAERS Safety Report 8058432-9 (Version None)
Quarter: 2012Q1

REPORT INFORMATION
  Report Type: 
  Country: None (occurrence: None)
  Receive Date: 20120120
  Receipt Date: 20120113
  Transmission Date: 20120608
  Serious: Yes (Hospitalization, Other)
  Sender: FDA-Public Use
  Company Number: BR-PFIZER INC-2012011675

PATIENT
  Age: 69 Year
  Sex: Female

DRUGS (13)
  1. XALATAN [Suspect]
     Indication: GLAUCOMA
     Dosage: ONE DROP IN EACH EYE (3 UG), 1X/DAY, BEFORE SLEEPING
     Route: 047
  2. SOMALGIN [Concomitant]
     Indication: CARDIAC DISORDER
     Dosage: UNK
     Dates: start: 20100101, end: 20120101
  3. BISOPROLOL FUMARATE [Concomitant]
     Indication: CARDIAC DISORDER
     Dosage: UNK
     Dates: start: 20100101, end: 20120101
  4. PHARMATON [Concomitant]
     Indication: VITAMIN SUPPLEMENTATION
     Dosage: UNK
     Dates: start: 20100101, end: 20120101
  5. ALDACTONE [Concomitant]
     Indication: RENAL DISORDER
     Dosage: A HALF OF TABLET DAILY
     Dates: start: 20100101, end: 20120101
  6. METFORMIN HYDROCHLORIDE [Concomitant]
     Indication: DIABETES MELLITUS
     Dosage: UNK
     Dates: start: 20070101, end: 20120101
  7. COMBIGAN [Suspect]
     Dosage: UNK
     Route: 047
  8. ATORVASTATIN CALCIUM [Concomitant]
     Indication: BLOOD CHOLESTEROL
     Dosage: UNK
     Dates: start: 20100101, end: 20120101
  9. DIOVAN [Concomitant]
     Indication: HYPERTENSION
     Dosage: ONE AND HALF TABLET DAILY
     Dates: start: 19950101, end: 20120101
  10. LIPITOR [Concomitant]
     Dosage: UNK
     Dates: start: 20100801, end: 20111101
  11. DAFORIN [Concomitant]
     Indication: ANXIOLYTIC THERAPY
     Dosage: UNK
     Dates: start: 20100101, end: 20120101
  12. MOTILIUM [Concomitant]
     Indication: GASTRIC DISORDER
     Dosage: UNK
     Dates: start: 20100101, end: 20120101
  13. PANTOZOL [Concomitant]
     Indication: GASTRIC DISORDER
     Dosage: UNK
     Dates: start: 20100101, end: 20120101

REACTIONS (3)
  - PULMONARY EMBOLISM [None]
  - INFARCTION [None]
  - ANGIOPLASTY [None]
